FAERS Safety Report 13874861 (Version 1)
Quarter: 2017Q3

REPORT INFORMATION
  Report Type: Spontaneous
  Country: US (occurrence: US)
  Receive Date: 20170816
  Receipt Date: 20170816
  Transmission Date: 20171127
  Serious: No
  Sender: FDA-Public Use
  Company Number: US-ROCHE-1015501

PATIENT
  Age: 92 Year
  Sex: Female

DRUGS (17)
  1. FAMOTIDINE. [Concomitant]
     Active Substance: FAMOTIDINE
     Dosage: 1 TAB IN MORNING
     Route: 065
  2. LEVOTHYROXINE SODIUM. [Concomitant]
     Active Substance: LEVOTHYROXINE SODIUM
     Route: 065
     Dates: start: 20101122
  3. LORATADINE. [Concomitant]
     Active Substance: LORATADINE
     Route: 065
     Dates: start: 20101122
  4. METHYLDOPA. [Concomitant]
     Active Substance: METHYLDOPA
     Route: 065
     Dates: start: 20101122
  5. FOLBIC [Concomitant]
     Active Substance: CYANOCOBALAMIN\FOLIC ACID\PYRIDOXINE
     Route: 065
     Dates: start: 20101122
  6. SINGULAIR [Concomitant]
     Active Substance: MONTELUKAST SODIUM
     Route: 065
     Dates: start: 20101122
  7. LEVAQUIN [Concomitant]
     Active Substance: LEVOFLOXACIN
  8. SIMVASTATIN. [Concomitant]
     Active Substance: SIMVASTATIN
  9. MUCINEX [Concomitant]
     Active Substance: GUAIFENESIN
     Route: 065
     Dates: start: 20101122
  10. CLINDAMYCIN. [Concomitant]
     Active Substance: CLINDAMYCIN
     Route: 065
  11. DICYCLOMINE [Concomitant]
     Active Substance: DICYCLOMINE HYDROCHLORIDE
  12. ALBUTEROL. [Concomitant]
     Active Substance: ALBUTEROL
     Dosage: DOSE - 2 PUFFS AS NEEDED
     Route: 065
     Dates: start: 20101122
  13. LUCENTIS [Suspect]
     Active Substance: RANIBIZUMAB
     Indication: VITREOUS FLOATERS
     Dosage: ROUTE- OS
     Route: 050
     Dates: start: 20110517, end: 20110722
  14. ASPIRIN EC [Concomitant]
     Active Substance: ASPIRIN
     Route: 065
     Dates: start: 20101122
  15. NAMENDA [Concomitant]
     Active Substance: MEMANTINE HYDROCHLORIDE
     Route: 065
     Dates: start: 20101122
  16. ALPRAZOLAM. [Concomitant]
     Active Substance: ALPRAZOLAM
     Dosage: DOSE - 0.5 OR 1 TAB DAILY AT BEDTIME
     Route: 065
     Dates: start: 20101122
  17. GLUCOSAMINE/CHONDROITIN [Concomitant]

REACTIONS (2)
  - Visual impairment [Recovered/Resolved]
  - Vitreous floaters [Recovered/Resolved]

NARRATIVE: CASE EVENT DATE: 20110517
